FAERS Safety Report 13497569 (Version 1)
Quarter: 2017Q2

REPORT INFORMATION
  Report Type: Report from Study
  Country: US (occurrence: US)
  Receive Date: 20170428
  Receipt Date: 20170428
  Transmission Date: 20170830
  Serious: Yes (Other)
  Sender: FDA-Public Use
  Company Number: US-AMGEN-USASL2017061993

PATIENT
  Age: 46 Year
  Sex: Female

DRUGS (3)
  1. IMURAN [Concomitant]
     Active Substance: AZATHIOPRINE
  2. PREDNISONE. [Concomitant]
     Active Substance: PREDNISONE
  3. NPLATE [Suspect]
     Active Substance: ROMIPLOSTIM
     Indication: IMMUNE THROMBOCYTOPENIC PURPURA
     Dosage: 626 MUG, QWK
     Route: 065

REACTIONS (7)
  - Insomnia [Unknown]
  - Drug ineffective [Recovering/Resolving]
  - Arthralgia [Unknown]
  - Fluid retention [Unknown]
  - Flushing [Unknown]
  - Asthenia [Unknown]
  - Myalgia [Unknown]
